FAERS Safety Report 6512009-2 (Version None)
Quarter: 2009Q4

REPORT INFORMATION
  Report Type: 
  Country: None (occurrence: None)
  Receive Date: 20091222
  Receipt Date: 20090513
  Transmission Date: 20100525
  Serious: No
  Sender: FDA-Public Use
  Company Number: US-ASTRAZENECA-2009UW12495

PATIENT
  Sex: Female
  Weight: 85.3 kg

DRUGS (8)
  1. CRESTOR [Suspect]
     Route: 048
  2. ALDACTONE [Concomitant]
  3. CELEBREX [Concomitant]
  4. LIPITOR [Concomitant]
  5. SYNTHROID [Concomitant]
  6. VALIUM [Concomitant]
  7. GLUCOPHAGE [Concomitant]
  8. VITAMINS [Concomitant]

REACTIONS (2)
  - BLOOD CHOLESTEROL INCREASED [None]
  - DRUG ADMINISTRATION ERROR [None]
